FAERS Safety Report 5344895-6 (Version None)
Quarter: 2007Q2

REPORT INFORMATION
  Report Type: 
  Country: None (occurrence: None)
  Receive Date: 20070416
  Receipt Date: 20070119
  Transmission Date: 20071010
  Serious: No
  Sender: FDA-Public Use
  Company Number: 2007SP000234

PATIENT
  Age: 81 Year
  Sex: Female
  Weight: 53.0709 kg

DRUGS (5)
  1. LUNESTA [Suspect]
     Indication: INITIAL INSOMNIA
     Dosage: SEE IMAGE
     Route: 048
     Dates: start: 20070118, end: 20070118
  2. LUNESTA [Suspect]
     Indication: INITIAL INSOMNIA
     Dosage: SEE IMAGE
     Route: 048
     Dates: start: 20070117
  3. METFORMIN HCL [Concomitant]
  4. ZOLOFT [Concomitant]
  5. CRESTOR [Concomitant]

REACTIONS (1)
  - INITIAL INSOMNIA [None]
